FAERS Safety Report 9516641 (Version 2)
Quarter: 2013Q4

REPORT INFORMATION
  Report Type: Report from Study
  Country: GB (occurrence: GB)
  Receive Date: 20130911
  Receipt Date: 20131114
  Transmission Date: 20140711
  Serious: Yes (Other)
  Sender: FDA-Public Use
  Company Number: GB-GLAXOSMITHKLINE-B0920491A

PATIENT
  Sex: Male
  Weight: 97 kg

DRUGS (3)
  1. FLUTICASONE PROPIONATE + SALMETEROL XINAFOATE [Suspect]
     Indication: CHRONIC OBSTRUCTIVE PULMONARY DISEASE
     Dosage: 1PUFF TWICE PER DAY
     Route: 065
  2. SERETIDE [Concomitant]
     Indication: ASTHMA
     Dosage: 1PUFF TWICE PER DAY
  3. TIOTROPIUM [Concomitant]
     Indication: ASTHMA
     Dosage: 18MCG PER DAY

REACTIONS (2)
  - Lower respiratory tract infection [Unknown]
  - Dyspnoea [Unknown]
